FAERS Safety Report 12556585 (Version 1)
Quarter: 2016Q3

REPORT INFORMATION
  Report Type: Spontaneous
  Country: FR (occurrence: FR)
  Receive Date: 20160714
  Receipt Date: 20160714
  Transmission Date: 20161109
  Serious: Yes (Life-Threatening, Disabling, Other)
  Sender: FDA-Public Use
  Company Number: PHHY2016FR074456

PATIENT
  Age: 21 Year
  Sex: Male

DRUGS (1)
  1. OXCARBAZEPINE. [Suspect]
     Active Substance: OXCARBAZEPINE
     Indication: PRODUCT USED FOR UNKNOWN INDICATION
     Dosage: UNK
     Route: 065

REACTIONS (7)
  - Corneal neovascularisation [Unknown]
  - Blindness [Unknown]
  - Toxic epidermal necrolysis [Unknown]
  - Nail dystrophy [Unknown]
  - Papule [Recovering/Resolving]
  - Skin hypopigmentation [Unknown]
  - Corneal scar [Unknown]
